FAERS Safety Report 10111671 (Version 2)
Quarter: 2014Q2

REPORT INFORMATION
  Report Type: Spontaneous
  Country: JP (occurrence: JP)
  Receive Date: 20140425
  Receipt Date: 20140425
  Transmission Date: 20141212
  Serious: Yes (Other)
  Sender: FDA-Public Use
  Company Number: JP-DSJP-DSJ-2014-05263

PATIENT
  Sex: 0

DRUGS (11)
  1. OLMETEC [Suspect]
     Indication: PRODUCT USED FOR UNKNOWN INDICATION
     Dosage: 20 MG, QD
     Route: 048
     Dates: start: 20131128, end: 20140117
  2. ALDACTONE A [Suspect]
     Indication: PRODUCT USED FOR UNKNOWN INDICATION
     Dosage: 25 MG, QD
     Route: 048
     Dates: start: 20131122, end: 20140117
  3. JANUVIA [Suspect]
     Indication: DIABETES MELLITUS
     Dosage: 50 MG, QD
     Route: 048
     Dates: start: 20131214, end: 20140117
  4. HUMALOG [Suspect]
     Indication: DIABETES MELLITUS MANAGEMENT
     Dosage: 4 IU, TID
     Route: 058
     Dates: start: 20131125, end: 20131127
  5. LANTUS                             /01483501/ [Suspect]
     Indication: DIABETES MELLITUS MANAGEMENT
     Dosage: 4 IU, QD
     Route: 058
     Dates: start: 20131125, end: 20131129
  6. BAYASPIRIN [Concomitant]
     Dosage: UNK
     Route: 065
  7. FAMOTIDINE [Concomitant]
     Dosage: UNK
     Route: 065
  8. ALOSENN                            /00476901/ [Concomitant]
     Dosage: UNK
     Route: 065
  9. AMLODIPINE [Concomitant]
     Dosage: UNK
     Route: 065
     Dates: start: 20131122
  10. GLIMEPIRIDE [Concomitant]
     Dosage: UNK
     Route: 065
     Dates: start: 20131217
  11. MAGMITT [Concomitant]
     Dosage: UNK
     Route: 065
     Dates: start: 20130116

REACTIONS (4)
  - Renal disorder [Recovering/Resolving]
  - Drug interaction [Unknown]
  - Hyperkalaemia [Recovering/Resolving]
  - Hyperuricaemia [Recovering/Resolving]
